FAERS Safety Report 14616719 (Version 2)
Quarter: 2018Q1

REPORT INFORMATION
  Report Type: Report from Study
  Country: US (occurrence: US)
  Receive Date: 20180309
  Receipt Date: 20180316
  Transmission Date: 20180509
  Serious: Yes (Other)
  Sender: FDA-Public Use
  Company Number: US-ROCHE-2062189

PATIENT
  Age: 28 Year
  Sex: Male
  Weight: 93.52 kg

DRUGS (1)
  1. OCREVUS [Suspect]
     Active Substance: OCRELIZUMAB
     Indication: MULTIPLE SCLEROSIS
     Dosage: THEN 600MG LATER
     Route: 065
     Dates: start: 20180110

REACTIONS (6)
  - Multiple sclerosis [Unknown]
  - Optic neuritis [Recovering/Resolving]
  - Visual impairment [Unknown]
  - Immunosuppression [Recovering/Resolving]
  - Vision blurred [Unknown]
  - Influenza [Recovering/Resolving]

NARRATIVE: CASE EVENT DATE: 20180216
